FAERS Safety Report 6838682-7 (Version None)
Quarter: 2010Q3

REPORT INFORMATION
  Report Type: 
  Country: None (occurrence: None)
  Receive Date: 20100713
  Receipt Date: 20070605
  Transmission Date: 20110219
  Serious: No
  Sender: FDA-Public Use
  Company Number: US-PFIZER INC-2007047003

PATIENT
  Sex: Female
  Weight: 54.545 kg

DRUGS (6)
  1. CHANTIX [Suspect]
     Indication: SMOKING CESSATION THERAPY
     Route: 048
     Dates: start: 20070501
  2. HYDROCHLOROTHIAZIDE [Concomitant]
     Indication: BLOOD PRESSURE ABNORMAL
  3. LOVASTATIN [Concomitant]
  4. ACTONEL [Concomitant]
  5. ZOLOFT [Concomitant]
  6. ALTACE [Concomitant]

REACTIONS (1)
  - TREMOR [None]
